FAERS Safety Report 6769561-1 (Version None)
Quarter: 2010Q2

REPORT INFORMATION
  Report Type: 
  Country: None (occurrence: None)
  Receive Date: 20100615
  Receipt Date: 20100610
  Transmission Date: 20101027
  Serious: Yes (Life-Threatening, Hospitalization, Other)
  Sender: FDA-Public Use
  Company Number: PHHO2010JP03642

PATIENT
  Sex: Female
  Weight: 44 kg

DRUGS (15)
  1. AFINITOR [Suspect]
     Indication: METASTATIC GASTRIC CANCER
     Dosage: CODE NOT BROKEN
     Route: 048
     Dates: start: 20100219, end: 20100307
  2. NSAID'S [Suspect]
  3. PURSENNID [Concomitant]
     Dosage: UNK
     Dates: start: 20100303, end: 20100306
  4. LOXONIN [Concomitant]
     Dosage: UNK
     Dates: start: 20091111
  5. RIVOTRIL [Concomitant]
     Dosage: UNK
     Dates: start: 20091111
  6. AMOXAN [Concomitant]
     Dosage: UNK
     Dates: start: 20100203
  7. OXINORM [Concomitant]
     Dosage: UNK
     Dates: start: 20100307, end: 20100307
  8. KENALOG [Concomitant]
     Dosage: UNK
     Dates: start: 20100303, end: 20100306
  9. HACHIAZULE [Concomitant]
     Dosage: UNK
     Dates: start: 20100303, end: 20100306
  10. MEYLON [Concomitant]
     Dosage: UNK
     Dates: start: 20100307, end: 20100307
  11. HUMULIN R [Concomitant]
     Dosage: UNK
     Dates: start: 20100307, end: 20100307
  12. ALBUMINAR [Concomitant]
     Dosage: UNK
     Dates: start: 20100307, end: 20100307
  13. MORPHINE HYDROCHLORIDE [Concomitant]
     Dosage: UNK
     Dates: start: 20100307, end: 20100307
  14. RED BLOOD CELLS [Concomitant]
     Dosage: UNK
     Dates: start: 20100307, end: 20100307
  15. NOVAMIN [Concomitant]

REACTIONS (20)
  - ABDOMINAL PAIN UPPER [None]
  - ARTERIAL STENT INSERTION [None]
  - BLOOD POTASSIUM INCREASED [None]
  - BLOOD PRESSURE DECREASED [None]
  - ENTEROSTOMY [None]
  - HAEMATOCHEZIA [None]
  - HAEMODYNAMIC INSTABILITY [None]
  - INTESTINAL ULCER [None]
  - LOSS OF CONSCIOUSNESS [None]
  - NECROSIS [None]
  - OESOPHAGEAL PERFORATION [None]
  - OESOPHAGOSTOMY [None]
  - PYREXIA [None]
  - SMALL INTESTINAL PERFORATION [None]
  - STENT REMOVAL [None]
  - SURGERY [None]
  - SURGICAL PROCEDURE REPEATED [None]
  - TONIC CONVULSION [None]
  - VASCULAR PSEUDOANEURYSM [None]
  - VOMITING [None]
